FAERS Safety Report 5843246-8 (Version None)
Quarter: 2008Q3

REPORT INFORMATION
  Report Type: 
  Country: None (occurrence: None)
  Receive Date: 20080813
  Receipt Date: 20080807
  Transmission Date: 20090109
  Serious: Yes (Death)
  Sender: FDA-Public Use
  Company Number: PHBS2008IT05325

PATIENT

DRUGS (2)
  1. CYCLOSPORINE [Suspect]
     Indication: THROMBOCYTOPENIC PURPURA
  2. FELODIPINE [Suspect]

REACTIONS (4)
  - BLOOD CREATININE INCREASED [None]
  - DEATH [None]
  - HYPERTRICHOSIS [None]
  - PLATELET COUNT DECREASED [None]
